FAERS Safety Report 4469075-8 (Version None)
Quarter: 2004Q4

REPORT INFORMATION
  Report Type: 
  Country: None (occurrence: None)
  Receive Date: 20041006
  Receipt Date: 20041006
  Transmission Date: 20050328
  Serious: Yes (Death)
  Sender: FDA-Public Use
  Company Number: None

PATIENT
  Age: 47 Year
  Sex: Female
  Weight: 79.8331 kg

DRUGS (5)
  1. CLOZAPINE [Suspect]
     Indication: BIPOLAR DISORDER
     Dosage: 3 TABLETS TWICE DAILY ORAL
     Route: 048
     Dates: start: 20040519, end: 20040610
  2. CLOZAPINE [Suspect]
     Indication: BORDERLINE PERSONALITY DISORDER
     Dosage: 3 TABLETS TWICE DAILY ORAL
     Route: 048
     Dates: start: 20040519, end: 20040610
  3. WELLBUTRIN SR [Concomitant]
  4. COGENTIN [Concomitant]
  5. DEPAKOTE ER [Concomitant]

REACTIONS (4)
  - FEELING ABNORMAL [None]
  - HYPERSENSITIVITY [None]
  - MYOCARDITIS [None]
  - RESTLESSNESS [None]
